FAERS Safety Report 18959721 (Version 2)
Quarter: 2021Q3

REPORT INFORMATION
  Report Type: Spontaneous
  Country: US (occurrence: US)
  Receive Date: 20210302
  Receipt Date: 20210903
  Transmission Date: 20211014
  Serious: Yes (Hospitalization, Other)
  Sender: FDA-Public Use
  Company Number: US-AMGEN-USASP2021031614

PATIENT
  Age: 78 Year
  Sex: Female

DRUGS (3)
  1. PROLIA [Suspect]
     Active Substance: DENOSUMAB
     Indication: OSTEOPOROSIS
     Dosage: UNK
     Route: 065
  2. AMOXYCILLIN [AMOXICILLIN] [Concomitant]
  3. VITAMINS [ASCORBIC ACID;ERGOCALCIFEROL;NICOTINAMIDE;RETINOL;RIBOFLAVIN [Concomitant]
     Active Substance: ASCORBIC ACID\ERGOCALCIFEROL\NIACINAMIDE\RETINOL\RIBOFLAVIN\THIAMINE

REACTIONS (12)
  - Gingival disorder [Unknown]
  - Road traffic accident [Unknown]
  - Diarrhoea [Recovered/Resolved]
  - Post procedural complication [Unknown]
  - Osteoarthritis [Unknown]
  - Inflammation [Unknown]
  - Thoracic vertebral fracture [Recovered/Resolved]
  - Cataract [Unknown]
  - Fibromyalgia [Unknown]
  - Gastrointestinal inflammation [Unknown]
  - Headache [Unknown]
  - Constipation [Unknown]

NARRATIVE: CASE EVENT DATE: 202001
